FAERS Safety Report 4753944-5 (Version None)
Quarter: 2005Q3

REPORT INFORMATION
  Report Type: 
  Country: None (occurrence: None)
  Receive Date: 20050825
  Receipt Date: 20050518
  Transmission Date: 20060218
  Serious: Yes (Other)
  Sender: FDA-Public Use
  Company Number: 11173

PATIENT

DRUGS (3)
  1. PACLITAXEL [Suspect]
     Dosage: 175 MG/M2 OTH IV
     Route: 042
  2. CARBOPLATIN [Suspect]
  3. BMS-214662 [Suspect]
     Dosage: 225 MG/M2 OTH IV
     Route: 042

REACTIONS (3)
  - DRUG TOXICITY [None]
  - NEUTROPENIA [None]
  - SEPTIC SHOCK [None]
